FAERS Safety Report 5408108-9 (Version None)
Quarter: 2007Q3

REPORT INFORMATION
  Report Type: 
  Country: None (occurrence: None)
  Receive Date: 20070806
  Receipt Date: 20070806
  Transmission Date: 20080115
  Serious: Yes (Death)
  Sender: FDA-Public Use
  Company Number: None

PATIENT
  Age: 60 Year
  Sex: Male

DRUGS (2)
  1. WARFARIN SODIUM [Suspect]
     Indication: INTRACARDIAC THROMBUS
     Dosage: 2.5MG OTHER PO
     Route: 048
     Dates: start: 20070330, end: 20070605
  2. CLOPIDOGREL [Suspect]
     Indication: STENT PLACEMENT
     Dosage: 75 MG PO QD
     Route: 048
     Dates: start: 20070402, end: 20070605

REACTIONS (3)
  - LUNG NEOPLASM MALIGNANT [None]
  - NAUSEA [None]
  - VOMITING [None]
